FAERS Safety Report 4776561-X (Version None)
Quarter: 2005Q3

REPORT INFORMATION
  Report Type: 
  Country: None (occurrence: None)
  Receive Date: 20050915
  Receipt Date: 20050902
  Transmission Date: 20060218
  Serious: Yes (Death, Hospitalization)
  Sender: FDA-Public Use
  Company Number: 2005124366

PATIENT
  Age: 42 Year
  Sex: Male
  Weight: 48 kg

DRUGS (7)
  1. IRINOTECAN HYDROCHLORIDE [Suspect]
     Indication: RECTAL CANCER
     Dosage: 80 MG (1 D), INTRAVENOUS; 60 MG (1 D), INTRAVENOUS
     Route: 042
     Dates: start: 20050809, end: 20050809
  2. IRINOTECAN HYDROCHLORIDE [Suspect]
     Indication: RECTAL CANCER
     Dosage: 80 MG (1 D), INTRAVENOUS; 60 MG (1 D), INTRAVENOUS
     Route: 042
     Dates: start: 20050816, end: 20050816
  3. FLUOROURACIL [Suspect]
     Indication: RECTAL CANCER
     Dosage: 850 MG (1 D),; 800 MG (1 D)
     Dates: start: 20050809, end: 20050809
  4. FLUOROURACIL [Suspect]
     Indication: RECTAL CANCER
     Dosage: 850 MG (1 D),; 800 MG (1 D)
     Dates: start: 20050816, end: 20050816
  5. STRONG (NEO-MINOPHAGEN C (AMINOACETIC ACID, CYSTEINE, GLYCYRRHIZIC ACI [Concomitant]
  6. CALCIUM LEVOFOLINATE [Suspect]
     Indication: RECTAL CANCER
     Dosage: 350 MG (1 D), INTRAVENOUS
     Route: 042
     Dates: start: 20050809, end: 20050809
  7. CALCIUM LEVOFOLINATE [Suspect]
     Indication: RECTAL CANCER
     Dosage: 350 MG (1 D), INTRAVENOUS
     Route: 042
     Dates: start: 20050816, end: 20050816

REACTIONS (13)
  - ANOREXIA [None]
  - BONE MARROW DEPRESSION [None]
  - COAGULOPATHY [None]
  - CONDITION AGGRAVATED [None]
  - DEHYDRATION [None]
  - DIARRHOEA [None]
  - DISSEMINATED INTRAVASCULAR COAGULATION [None]
  - HAEMORRHAGIC DIATHESIS [None]
  - MALAISE [None]
  - METASTASES TO LYMPH NODES [None]
  - MULTI-ORGAN FAILURE [None]
  - RESPIRATORY DISORDER [None]
  - STOMATITIS [None]
